FAERS Safety Report 7605095-X (Version None)
Quarter: 2011Q3

REPORT INFORMATION
  Report Type: 
  Country: None (occurrence: None)
  Receive Date: 20110713
  Receipt Date: 20101029
  Transmission Date: 20111222
  Serious: Yes (Hospitalization, Other)
  Sender: FDA-Public Use
  Company Number: US-BAYER-200939447NA

PATIENT
  Age: 48 Year
  Sex: Female
  Weight: 65 kg

DRUGS (23)
  1. SENSIPAR [Concomitant]
     Dosage: 60 MG, UNK
     Route: 048
  2. PROMETHAZINE [Concomitant]
     Dosage: 25 MG, UNK
     Route: 048
  3. PHOSLO [Concomitant]
     Dosage: 67 MG, UNK
     Route: 048
  4. PROTAMINE SULFATE [Concomitant]
     Dosage: 150 MG, UNK
     Route: 042
     Dates: start: 20061227, end: 20061227
  5. TRASYLOL [Suspect]
     Indication: CORONARY ARTERY BYPASS
     Dosage: 50 ML/HR
     Route: 042
     Dates: start: 20061227, end: 20061227
  6. FENTANYL-100 [Concomitant]
     Dosage: 15 CC
     Route: 042
     Dates: start: 20061227, end: 20061227
  7. SUCCINYLCHOLINE CHLORIDE [Concomitant]
     Dosage: 100 MG, UNK
     Route: 042
     Dates: start: 20061227, end: 20061227
  8. ALBUTEROL SULFATE AUTOHALER [Concomitant]
     Dosage: 90 MCG
     Route: 055
  9. LISINOPRIL [Concomitant]
     Dosage: 20 MG, UNK
     Route: 048
     Dates: start: 20000101
  10. MAGNESIUM [Concomitant]
     Dosage: 4 G, UNK
     Route: 042
     Dates: start: 20061227, end: 20061227
  11. MIDAZOLAM HCL [Concomitant]
     Dosage: 10 MG, UNK
     Route: 042
     Dates: start: 20061227, end: 20061227
  12. LABETALOL HCL [Concomitant]
     Dosage: 400 MG, UNK
     Route: 048
  13. HECTOROL [Concomitant]
     Indication: DIALYSIS
     Route: 042
  14. FAMOTIDINE [Concomitant]
     Dosage: 20 MG, UNK
     Route: 048
  15. HYDROCODONE BITARTRATE AND ACETAMINOPHEN [Concomitant]
     Dosage: 7.5/650 MG
     Route: 048
  16. VANCOMYCIN [Concomitant]
     Dosage: 2 G, UNK
     Route: 042
     Dates: start: 20061227, end: 20061227
  17. LIDOCAINE [Concomitant]
     Dosage: 200 MG, UNK
     Route: 042
     Dates: start: 20061227, end: 20061227
  18. CALCIUM CHLORIDE [Concomitant]
     Dosage: 3 G, UNK
     Route: 042
     Dates: start: 20061227, end: 20061227
  19. LEVOFLOXACIN [Concomitant]
     Dosage: 500 MG, UNK
     Route: 042
     Dates: start: 20061227, end: 20061227
  20. SODIUM BICARBONATE [Concomitant]
     Dosage: 4 AMP
     Route: 042
     Dates: start: 20061227, end: 20061227
  21. TRASYLOL [Suspect]
     Indication: MITRAL VALVE REPLACEMENT
     Dosage: 200 ML LOADING DOSE
     Route: 050
     Dates: start: 20061227
  22. EPOGEN [Concomitant]
     Indication: DIALYSIS
  23. ATRACURIUM [Concomitant]
     Dosage: 100 MG, UNK
     Route: 042
     Dates: start: 20061227, end: 20061227

REACTIONS (13)
  - CEREBROVASCULAR ACCIDENT [None]
  - RENAL FAILURE [None]
  - RENAL IMPAIRMENT [None]
  - EMOTIONAL DISTRESS [None]
  - DEPRESSION [None]
  - STRESS [None]
  - UNEVALUABLE EVENT [None]
  - PAIN [None]
  - RENAL INJURY [None]
  - INJURY [None]
  - FEAR [None]
  - ANXIETY [None]
  - ANAEMIA [None]
